FAERS Safety Report 6851481-5 (Version None)
Quarter: 2010Q3

REPORT INFORMATION
  Report Type: 
  Country: None (occurrence: None)
  Receive Date: 20100717
  Receipt Date: 20080408
  Transmission Date: 20110219
  Serious: No
  Sender: FDA-Public Use
  Company Number: US-PFIZER INC-2008005055

PATIENT
  Sex: Male
  Weight: 78.181 kg

DRUGS (1)
  1. CHANTIX [Suspect]
     Indication: SMOKING CESSATION THERAPY
     Dates: start: 20071216, end: 20080112

REACTIONS (4)
  - LEUKOPLAKIA [None]
  - PAIN IN JAW [None]
  - PAROTID DUCT OBSTRUCTION [None]
  - TOOTHACHE [None]
